FAERS Safety Report 19990333 (Version 1)
Quarter: 2021Q4

REPORT INFORMATION
  Report Type: Spontaneous
  Country: US (occurrence: US)
  Receive Date: 20211022
  Receipt Date: 20211022
  Transmission Date: 20220304
  Serious: No
  Sender: FDA-Public Use
  Company Number: None

PATIENT
  Age: 89 Year
  Sex: Female
  Weight: 66.15 kg

DRUGS (16)
  1. ETOPOSIDE [Suspect]
     Active Substance: ETOPOSIDE
     Indication: Ovarian cancer
     Dosage: ?          OTHER FREQUENCY:QD FOR 21/28 DAYS;
     Route: 048
     Dates: start: 20210928
  2. OMEPRAZOLE [Concomitant]
     Active Substance: OMEPRAZOLE
  3. LEVOTHYROXINE [Concomitant]
     Active Substance: LEVOTHYROXINE
  4. LOSARTAN [Concomitant]
     Active Substance: LOSARTAN
  5. Biotin 10mg [Concomitant]
  6. AMLODIPINE BESYLATE [Concomitant]
     Active Substance: AMLODIPINE BESYLATE
  7. ASPIRIN [Concomitant]
     Active Substance: ASPIRIN
  8. XARELTO [Concomitant]
     Active Substance: RIVAROXABAN
  9. VITAMINS [Concomitant]
     Active Substance: VITAMINS
  10. Co Q 10 10mg [Concomitant]
  11. Vitamin E 100IU [Concomitant]
  12. Vitamin B12 500mcg [Concomitant]
  13. Vitamin D3 1000IU [Concomitant]
  14. Hair Skin Nails [Concomitant]
  15. ROSUVASTATIN [Concomitant]
     Active Substance: ROSUVASTATIN
  16. Calcium 600mg [Concomitant]

REACTIONS (1)
  - Joint swelling [None]

NARRATIVE: CASE EVENT DATE: 20211022
